FAERS Safety Report 17163977 (Version 2)
Quarter: 2020Q3

REPORT INFORMATION
  Report Type: Spontaneous
  Country: DE (occurrence: DE)
  Receive Date: 20191217
  Receipt Date: 20200807
  Transmission Date: 20201102
  Serious: Yes (Other)
  Sender: FDA-Public Use
  Company Number: NVSC2019DE069327

PATIENT
  Sex: Female

DRUGS (10)
  1. CLOTRIMAZOLE. [Suspect]
     Active Substance: CLOTRIMAZOLE
     Indication: VULVOVAGINAL MYCOTIC INFECTION
     Dosage: UNK
     Route: 065
  2. FENOTEROL [Suspect]
     Active Substance: FENOTEROL
     Indication: ASTHMA
     Dosage: UNK
     Route: 065
  3. ENOXAPARIN [Suspect]
     Active Substance: ENOXAPARIN
     Indication: THROMBOSIS PROPHYLAXIS
     Dosage: UNK
     Route: 065
  4. BETAMETHASONE. [Suspect]
     Active Substance: BETAMETHASONE
     Indication: PRODUCT USED FOR UNKNOWN INDICATION
     Dosage: UNK
     Route: 065
  5. FORMOTEROL [Suspect]
     Active Substance: FORMOTEROL
     Indication: ASTHMA
     Dosage: UNK
     Route: 065
  6. LIGNOCAINE [Suspect]
     Active Substance: LIDOCAINE HYDROCHLORIDE
     Indication: PRODUCT USED FOR UNKNOWN INDICATION
     Dosage: UNK
     Route: 065
  7. AMOXICILLIN. [Suspect]
     Active Substance: AMOXICILLIN
     Indication: PRODUCT USED FOR UNKNOWN INDICATION
     Dosage: UNK
     Route: 065
  8. ACETAMINOPHEN (PARACETAMOL) [Suspect]
     Active Substance: ACETAMINOPHEN
     Indication: PAIN
     Dosage: UNK
     Route: 065
  9. PENICILLIN [Suspect]
     Active Substance: PENICILLIN
     Indication: VULVOVAGINAL MYCOTIC INFECTION
     Dosage: UNK
     Route: 065
  10. BUDESONIDE. [Suspect]
     Active Substance: BUDESONIDE
     Indication: ASTHMA
     Dosage: UNK
     Route: 065

REACTIONS (2)
  - Oligohydramnios [Unknown]
  - Maternal exposure during pregnancy [Unknown]
